FAERS Safety Report 9734446 (Version 2)
Quarter: 2015Q2

REPORT INFORMATION
  Report Type: Spontaneous
  Country: US (occurrence: US)
  Receive Date: 20131206
  Receipt Date: 20150519
  Transmission Date: 20150821
  Serious: Yes (Death)
  Sender: FDA-Public Use
  Company Number: US-BEH-2013039229

PATIENT
  Sex: Male

DRUGS (3)
  1. CARIMUNE [Suspect]
     Active Substance: HUMAN IMMUNOGLOBULIN G
     Indication: LUNG INFECTION
     Dosage: APPROX. 0.3 G/KG PER DAY
     Route: 042
  2. CARIMUNE [Suspect]
     Active Substance: HUMAN IMMUNOGLOBULIN G
     Indication: LUNG DISORDER
     Dosage: APPROX. 0.3 G/KG PER DAY
     Route: 042
  3. CARIMUNE [Suspect]
     Active Substance: HUMAN IMMUNOGLOBULIN G
     Indication: MULTI-ORGAN FAILURE
     Dosage: APPROX. 0.3 G/KG PER DAY
     Route: 042

REACTIONS (3)
  - Drug effect decreased [Fatal]
  - Sepsis [Fatal]
  - Off label use [Unknown]
